FAERS Safety Report 9199944 (Version 1)
Quarter: 2013Q1

REPORT INFORMATION
  Report Type: Spontaneous
  Country: CA (occurrence: CA)
  Receive Date: 20130329
  Receipt Date: 20130329
  Transmission Date: 20140127
  Serious: Yes (Death)
  Sender: FDA-Public Use
  Company Number: CA-INCYTE CORPORATION-2012IN001911

PATIENT
  Sex: Female

DRUGS (2)
  1. JAKAVI [Suspect]
     Indication: MYELOFIBROSIS
     Dosage: UNK
     Route: 048
  2. JAKAVI [Suspect]
     Dosage: 5 MG, BID
     Route: 048
     Dates: end: 201208

REACTIONS (4)
  - Death [Fatal]
  - Pain [Unknown]
  - Malaise [Unknown]
  - General physical condition abnormal [Unknown]
